FAERS Safety Report 14819834 (Version 1)
Quarter: 2018Q2

REPORT INFORMATION
  Report Type: Report from Study
  Country: US (occurrence: US)
  Receive Date: 20180427
  Receipt Date: 20180427
  Transmission Date: 20180711
  Serious: Yes (Other)
  Sender: FDA-Public Use
  Company Number: US-JNJFOC-20180432170

PATIENT
  Sex: Female

DRUGS (5)
  1. METOPROLOL SUCCINATE. [Concomitant]
     Active Substance: METOPROLOL SUCCINATE
  2. PROTONIX [Concomitant]
     Active Substance: PANTOPRAZOLE SODIUM
  3. IMBRUVICA [Suspect]
     Active Substance: IBRUTINIB
     Indication: CHRONIC LYMPHOCYTIC LEUKAEMIA
     Route: 048
     Dates: start: 20151205
  4. TYLENOL [Concomitant]
     Active Substance: ACETAMINOPHEN
  5. HYDROCHLOROTHIAZIDE. [Concomitant]
     Active Substance: HYDROCHLOROTHIAZIDE

REACTIONS (6)
  - Renal cyst [Unknown]
  - Ovarian cyst [Unknown]
  - Malaise [Unknown]
  - Gastric polyps [Unknown]
  - Skin mass [Unknown]
  - Nausea [Unknown]

NARRATIVE: CASE EVENT DATE: 2018
